FAERS Safety Report 11080638 (Version 1)
Quarter: 2015Q2

REPORT INFORMATION
  Report Type: Spontaneous
  Country: US (occurrence: None)
  Receive Date: 20150430
  Receipt Date: 20150430
  Transmission Date: 20150821
  Serious: Yes (Death)
  Sender: FDA-Public Use
  Company Number: None

PATIENT
  Age: 91 Year
  Sex: Male

DRUGS (1)
  1. TIKOSYN [Suspect]
     Active Substance: DOFETILIDE
     Route: 048
     Dates: start: 20140402, end: 20140419

REACTIONS (3)
  - Chronic obstructive pulmonary disease [None]
  - Disease progression [None]
  - Cardiac failure congestive [None]

NARRATIVE: CASE EVENT DATE: 20150419
